FAERS Safety Report 12548944 (Version 1)
Quarter: 2016Q3

REPORT INFORMATION
  Report Type: Spontaneous
  Country: GB (occurrence: GB)
  Receive Date: 20160712
  Receipt Date: 20160712
  Transmission Date: 20161109
  Serious: Yes (Other)
  Sender: FDA-Public Use
  Company Number: GB-009507513-1607GBR003132

PATIENT
  Age: 65 Year
  Sex: Male
  Weight: 84.36 kg

DRUGS (2)
  1. LACIDIPINE [Suspect]
     Active Substance: LACIDIPINE
     Indication: BLOOD PRESSURE ABNORMAL
     Dosage: 2 MG, UNK
     Route: 048
     Dates: start: 2013
  2. LOSARTAN POTASSIUM. [Suspect]
     Active Substance: LOSARTAN POTASSIUM
     Indication: BLOOD PRESSURE ABNORMAL
     Dosage: 50 (UNITS NOT PROVIDED)
     Route: 048
     Dates: start: 2014, end: 2015

REACTIONS (4)
  - Nightmare [Not Recovered/Not Resolved]
  - Sleep talking [Not Recovered/Not Resolved]
  - Depression [Not Recovered/Not Resolved]
  - Agitation [Not Recovered/Not Resolved]

NARRATIVE: CASE EVENT DATE: 2014
